FAERS Safety Report 13076469 (Version 1)
Quarter: 2016Q4

REPORT INFORMATION
  Report Type: Report from Study
  Country: JP (occurrence: JP)
  Receive Date: 20161230
  Receipt Date: 20161230
  Transmission Date: 20170207
  Serious: Yes (Hospitalization)
  Sender: FDA-Public Use
  Company Number: JP-ASTRAZENECA-2016SF37047

PATIENT
  Age: 74 Year
  Sex: Male
  Weight: 64 kg

DRUGS (4)
  1. FORXIGA 5MG TABLETS [Suspect]
     Active Substance: DAPAGLIFLOZIN
     Indication: TYPE 2 DIABETES MELLITUS
     Route: 048
     Dates: start: 20151007
  2. NIFELANTERN CR [Concomitant]
     Active Substance: NIFEDIPINE
     Route: 048
     Dates: start: 20160302, end: 20160323
  3. NIFELANTERN CR [Concomitant]
     Active Substance: NIFEDIPINE
     Route: 048
     Dates: end: 20160301
  4. ATORVASTATIN [Concomitant]
     Active Substance: ATORVASTATIN
     Route: 048

REACTIONS (2)
  - Aortic aneurysm [Recovered/Resolved]
  - Ventricular extrasystoles [Recovered/Resolved]

NARRATIVE: CASE EVENT DATE: 20160621
